FAERS Safety Report 4694914-5 (Version None)
Quarter: 2005Q2

REPORT INFORMATION
  Report Type: 
  Country: None (occurrence: None)
  Receive Date: 20050617
  Receipt Date: 20050613
  Transmission Date: 20051028
  Serious: Yes (Hospitalization)
  Sender: FDA-Public Use
  Company Number: S05-USA-00786-01

PATIENT
  Age: 88 Year
  Sex: Female

DRUGS (11)
  1. NAMENDA [Suspect]
     Indication: DEMENTIA
     Dosage: 10 MG BID PO
     Route: 048
     Dates: start: 20041101, end: 20050210
  2. ARICEPT [Concomitant]
  3. ZYPREXA [Concomitant]
  4. ZESTRIL [Concomitant]
  5. SYNTHROID [Concomitant]
  6. BUSPAR [Concomitant]
  7. MULTI-VITAMIN [Concomitant]
  8. ZOLOFT [Concomitant]
  9. ASPIRIN [Concomitant]
  10. SEROQUEL [Concomitant]
  11. LASIX [Concomitant]

REACTIONS (6)
  - ASTHENIA [None]
  - CYSTITIS [None]
  - DISEASE RECURRENCE [None]
  - LETHARGY [None]
  - PYREXIA [None]
  - TREMOR [None]
